FAERS Safety Report 10841240 (Version 2)
Quarter: 2015Q1

REPORT INFORMATION
  Report Type: Spontaneous
  Country: US (occurrence: US)
  Receive Date: 20150220
  Receipt Date: 20150227
  Transmission Date: 20150721
  Serious: No
  Sender: FDA-Public Use
  Company Number: DE-ASTRAZENECA-2015SE16493

PATIENT
  Age: 26834 Day
  Sex: Male

DRUGS (4)
  1. VIMOVO [Suspect]
     Active Substance: ESOMEPRAZOLE MAGNESIUM\NAPROXEN
     Indication: BACK PAIN
     Dosage: 500/20 MG, ONCE DAILY
     Route: 048
     Dates: start: 20150106
  2. BACLOFEN. [Concomitant]
     Active Substance: BACLOFEN
  3. DIOVAN [Concomitant]
     Active Substance: VALSARTAN
  4. GLIPIZIDE. [Concomitant]
     Active Substance: GLIPIZIDE

REACTIONS (2)
  - Dizziness [Recovered/Resolved]
  - Somnolence [Recovered/Resolved]

NARRATIVE: CASE EVENT DATE: 20150201
